FAERS Safety Report 21988560 (Version 1)
Quarter: 2023Q1

REPORT INFORMATION
  Report Type: Spontaneous
  Country: CZ (occurrence: CZ)
  Receive Date: 20230214
  Receipt Date: 20230214
  Transmission Date: 20230418
  Serious: Yes (Death, Other)
  Sender: FDA-Public Use
  Company Number: None

PATIENT
  Age: 59 Year
  Sex: Male

DRUGS (5)
  1. DEXAMETHASONE [Suspect]
     Active Substance: DEXAMETHASONE
     Indication: Product used for unknown indication
     Dosage: UNK
     Route: 065
     Dates: start: 202102, end: 2021
  2. ENOXAPARIN [Suspect]
     Active Substance: ENOXAPARIN
     Indication: Anticoagulant therapy
     Dosage: UNK
     Route: 042
     Dates: start: 2021
  3. METHYLPREDNISOLONE [Suspect]
     Active Substance: METHYLPREDNISOLONE
     Indication: COVID-19 pneumonia
     Dosage: 40 MILLIGRAM (PER DAY) (FOR THE FIRST FOUR MONTHS, THE PATIENT CONTINUOUSLY RECEIVED SYSTEMIC CORTIC
     Route: 065
     Dates: start: 2021, end: 2021
  4. METHYLPREDNISOLONE [Suspect]
     Active Substance: METHYLPREDNISOLONE
     Indication: Severe acute respiratory syndrome
     Dosage: 10 MILLIGRAM (PER DAY) (FOR THE FIRST FOUR MONTHS, THE PATIENT CONTINUOUSLY RECEIVED SYSTEMIC CORTIC
     Route: 065
     Dates: start: 2021, end: 2021
  5. METHYLPREDNISOLONE [Suspect]
     Active Substance: METHYLPREDNISOLONE
     Indication: Respiratory failure

REACTIONS (9)
  - Sepsis [Fatal]
  - Respiratory tract infection [Fatal]
  - Femoral neck fracture [Unknown]
  - Osteoporosis [Unknown]
  - Superinfection bacterial [Unknown]
  - Enterococcal infection [Unknown]
  - Haematological infection [Unknown]
  - Herpes virus infection [Unknown]
  - Infection reactivation [Unknown]

NARRATIVE: CASE EVENT DATE: 20210101
